FAERS Safety Report 18606027 (Version 2)
Quarter: 2020Q4

REPORT INFORMATION
  Report Type: Spontaneous
  Country: US (occurrence: US)
  Receive Date: 20201211
  Receipt Date: 20201230
  Transmission Date: 20210114
  Serious: Yes (Other)
  Sender: FDA-Public Use
  Company Number: US-TEVA-2020-US-1858332

PATIENT
  Sex: Male

DRUGS (2)
  1. TREPROSTINIL MDV TEVA [Suspect]
     Active Substance: TREPROSTINIL
     Indication: PULMONARY ARTERIAL HYPERTENSION
     Dosage: 40NG/KG/MIN
     Route: 042
     Dates: start: 20190702
  2. OFEV [Suspect]
     Active Substance: NINTEDANIB
     Route: 065

REACTIONS (7)
  - Headache [Not Recovered/Not Resolved]
  - Eructation [Unknown]
  - Arthralgia [Unknown]
  - Tooth loss [Unknown]
  - Neuropathy peripheral [Unknown]
  - Abdominal distension [Unknown]
  - Blindness [Unknown]
